FAERS Safety Report 7032208-3 (Version None)
Quarter: 2010Q4

REPORT INFORMATION
  Report Type: 
  Country: None (occurrence: None)
  Receive Date: 20101007
  Receipt Date: 20100928
  Transmission Date: 20110411
  Serious: Yes (Other)
  Sender: FDA-Public Use
  Company Number: US-BAXTER-2010BH024583

PATIENT
  Age: 4 Year
  Sex: Female
  Weight: 15 kg

DRUGS (6)
  1. GAMMAGARD LIQUID [Suspect]
     Indication: BONE MARROW TRANSPLANT
     Route: 042
     Dates: start: 20100917, end: 20100917
  2. GAMMAGARD LIQUID [Suspect]
     Indication: SECONDARY IMMUNODEFICIENCY
     Route: 042
     Dates: start: 20100917, end: 20100917
  3. GAMMAGARD LIQUID [Suspect]
     Route: 042
     Dates: start: 20100924, end: 20100924
  4. GAMMAGARD LIQUID [Suspect]
     Route: 042
     Dates: start: 20100924, end: 20100924
  5. VANCOMYCIN [Concomitant]
  6. IMMUNOSUPPRESSIVE AGENTS [Concomitant]

REACTIONS (1)
  - COOMBS DIRECT TEST POSITIVE [None]
